FAERS Safety Report 11585997 (Version 1)
Quarter: 2015Q3

REPORT INFORMATION
  Report Type: Spontaneous
  Country: US (occurrence: US)
  Receive Date: 20150916
  Receipt Date: 20150916
  Transmission Date: 20151125
  Serious: No
  Sender: FDA-Public Use
  Company Number: US-ELI_LILLY_AND_COMPANY-US200803006513

PATIENT
  Sex: Female

DRUGS (3)
  1. FORTEO [Suspect]
     Active Substance: TERIPARATIDE
     Dates: start: 20080325
  2. ACTONEL [Concomitant]
     Active Substance: RISEDRONATE SODIUM
     Dates: start: 200612
  3. FORTEO [Suspect]
     Active Substance: TERIPARATIDE
     Dates: start: 200412, end: 200612

REACTIONS (1)
  - Bone density decreased [Unknown]

NARRATIVE: CASE EVENT DATE: 200712
